FAERS Safety Report 4900938-2 (Version None)
Quarter: 2006Q1

REPORT INFORMATION
  Report Type: 
  Country: None (occurrence: None)
  Receive Date: 20060203
  Receipt Date: 20050408
  Transmission Date: 20060701
  Serious: Yes (Hospitalization, Disabling)
  Sender: FDA-Public Use
  Company Number: US-MERCK-0504USA01675

PATIENT
  Age: 65 Year
  Sex: Female
  Weight: 70 kg

DRUGS (13)
  1. VIOXX [Suspect]
     Indication: ARTHRALGIA
     Route: 048
     Dates: start: 20011201, end: 20040301
  2. VIOXX [Suspect]
     Indication: BACK PAIN
     Route: 048
     Dates: start: 20011201, end: 20040301
  3. ASPIRIN [Concomitant]
     Route: 048
  4. ELAVIL [Concomitant]
     Route: 048
  5. SKELAXIN [Concomitant]
     Route: 048
  6. LORTAB [Concomitant]
     Route: 048
  7. NORVASC [Concomitant]
     Route: 048
  8. DETROL [Concomitant]
     Route: 048
  9. NEURONTIN [Concomitant]
     Route: 048
  10. CALCIUM (UNSPECIFIED) [Concomitant]
     Route: 065
  11. GLUCOSAMINE [Concomitant]
     Route: 065
  12. OMEGA-3 MARINE TRIGLYCERIDES [Concomitant]
     Route: 065
  13. ASPIRIN [Concomitant]
     Route: 065

REACTIONS (25)
  - ARACHNOIDITIS [None]
  - CERVICAL MYELOPATHY [None]
  - DEMYELINATION [None]
  - DEPRESSION [None]
  - DROOLING [None]
  - EXTRAPYRAMIDAL DISORDER [None]
  - FALL [None]
  - GASTROOESOPHAGEAL REFLUX DISEASE [None]
  - HIP FRACTURE [None]
  - HYPOPHONESIS [None]
  - INJURY [None]
  - ISCHAEMIC STROKE [None]
  - LACUNAR INFARCTION [None]
  - LUMBAR SPINAL STENOSIS [None]
  - MASKED FACIES [None]
  - MICTURITION URGENCY [None]
  - MUSCLE RIGIDITY [None]
  - MUSCLE SPASMS [None]
  - OSTEOPOROSIS [None]
  - PAIN IN EXTREMITY [None]
  - PARKINSON'S DISEASE [None]
  - PEPTIC ULCER [None]
  - RADICULOPATHY [None]
  - SPINAL COLUMN STENOSIS [None]
  - URINARY INCONTINENCE [None]
